FAERS Safety Report 21885803 (Version 2)
Quarter: 2023Q2

REPORT INFORMATION
  Report Type: Report from Study
  Country: US (occurrence: US)
  Receive Date: 20230119
  Receipt Date: 20230417
  Transmission Date: 20230722
  Serious: No
  Sender: FDA-Public Use
  Company Number: US-ABBVIE-4242673

PATIENT
  Sex: Male

DRUGS (3)
  1. SKYRIZI [Suspect]
     Active Substance: RISANKIZUMAB-RZAA
     Indication: Psoriasis
     Dosage: WEEK 0
     Route: 058
     Dates: start: 20221024, end: 20221024
  2. SKYRIZI [Suspect]
     Active Substance: RISANKIZUMAB-RZAA
     Dosage: WEEK  4
     Route: 058
     Dates: start: 20221128, end: 20221128
  3. SKYRIZI [Suspect]
     Active Substance: RISANKIZUMAB-RZAA
     Dosage: FLU, COLD, SLEEPING ALL THE TIME OCCURRED IN 2022
     Route: 058

REACTIONS (7)
  - Drug ineffective [Unknown]
  - Influenza [Unknown]
  - Psoriasis [Unknown]
  - Hypersomnia [Unknown]
  - Nasopharyngitis [Unknown]
  - Arthralgia [Unknown]
  - Myalgia [Unknown]
